FAERS Safety Report 12673778 (Version 2)
Quarter: 2016Q4

REPORT INFORMATION
  Report Type: Spontaneous
  Country: CH (occurrence: HN)
  Receive Date: 20160822
  Receipt Date: 20161026
  Transmission Date: 20170207
  Serious: Yes (Death)
  Sender: FDA-Public Use
  Company Number: CH-LPDUSPRD-20160716

PATIENT
  Sex: Female

DRUGS (1)
  1. VENOFER [Suspect]
     Active Substance: IRON SUCROSE
     Dosage: UNKNOWN
     Route: 041

REACTIONS (2)
  - Death [Fatal]
  - Hypersensitivity [Fatal]
